FAERS Safety Report 16030992 (Version 1)
Quarter: 2019Q1

REPORT INFORMATION
  Report Type: Spontaneous
  Country: US (occurrence: US)
  Receive Date: 20190304
  Receipt Date: 20190304
  Transmission Date: 20190418
  Serious: Yes (Other)
  Sender: FDA-Public Use
  Company Number: US-PFIZER INC-2019080120

PATIENT
  Age: 56 Year
  Sex: Female
  Weight: 55.34 kg

DRUGS (6)
  1. PROGESTERONE. [Suspect]
     Active Substance: PROGESTERONE
     Indication: DYSURIA
     Dosage: 100 MG, 1X/DAY (AT BED TIME)
     Route: 048
  2. ESTRING [Suspect]
     Active Substance: ESTRADIOL
     Indication: DYSPAREUNIA
  3. PROGESTERONE. [Suspect]
     Active Substance: PROGESTERONE
     Indication: DYSPAREUNIA
  4. ESTRING [Suspect]
     Active Substance: ESTRADIOL
     Indication: VULVOVAGINAL DRYNESS
  5. ESTRING [Suspect]
     Active Substance: ESTRADIOL
     Indication: DYSURIA
     Dosage: 2 MG, EVERY 3 MONTHS
     Dates: start: 201807, end: 20190119
  6. PROGESTERONE. [Suspect]
     Active Substance: PROGESTERONE
     Indication: VULVOVAGINAL DRYNESS

REACTIONS (4)
  - Constipation [Unknown]
  - Pollakiuria [Unknown]
  - Umbilical hernia [Unknown]
  - Procedural pain [Unknown]
